FAERS Safety Report 4302513-X (Version None)
Quarter: 2004Q1

REPORT INFORMATION
  Report Type: 
  Country: None (occurrence: None)
  Receive Date: 20040223
  Receipt Date: 20040223
  Transmission Date: 20041129
  Serious: Yes (Death)
  Sender: FDA-Public Use
  Company Number: None

PATIENT
  Age: 77 Year
  Sex: Female
  Weight: 63.5036 kg

DRUGS (1)
  1. AMIODARONE 200 MG BARR [Suspect]
     Indication: CARDIAC FIBRILLATION
     Dosage: 200 MG TWICE DAIL ORAL, ONCE DAILY ORAL
     Route: 048
     Dates: start: 20031223, end: 20040122

REACTIONS (2)
  - DYSPNOEA [None]
  - PNEUMONIA [None]
